FAERS Safety Report 24171400 (Version 1)
Quarter: 2024Q3

REPORT INFORMATION
  Report Type: Spontaneous
  Country: US (occurrence: US)
  Receive Date: 20240805
  Receipt Date: 20240805
  Transmission Date: 20241017
  Serious: No
  Sender: RANBAXY
  Company Number: US-SUN PHARMACEUTICAL INDUSTRIES LTD-2024R1-446862

PATIENT
  Sex: Male

DRUGS (1)
  1. ODOMZO [Suspect]
     Active Substance: SONIDEGIB
     Indication: Skin cancer
     Dosage: UNK (TAKE 1 CAPSULE BY MOUTH ONCE DAILY AS DIRECTED)
     Route: 048

REACTIONS (4)
  - Alopecia [Unknown]
  - Nausea [Unknown]
  - Taste disorder [Unknown]
  - Muscle spasms [Unknown]
